FAERS Safety Report 15486819 (Version 1)
Quarter: 2018Q4

REPORT INFORMATION
  Report Type: Spontaneous
  Country: US (occurrence: US)
  Receive Date: 20181011
  Receipt Date: 20181011
  Transmission Date: 20190205
  Serious: No
  Sender: FDA-Public Use
  Company Number: US-ACLARIS THERAPEUTICS-2018US006810

PATIENT
  Sex: Female
  Weight: 73.47 kg

DRUGS (4)
  1. ESKATA [Suspect]
     Active Substance: HYDROGEN PEROXIDE
     Indication: SEBORRHOEIC KERATOSIS
     Dosage: 1 DF, 2-3 TIMES
     Route: 061
     Dates: start: 201806
  2. ESKATA [Suspect]
     Active Substance: HYDROGEN PEROXIDE
     Dosage: 1 DF, 2-3 TIMES
     Route: 061
     Dates: start: 201806
  3. LISINOPRIL/HYDROCHLOORTHIAZIDE [Concomitant]
     Active Substance: HYDROCHLOROTHIAZIDE\LISINOPRIL
     Indication: HYPERTENSION
     Dosage: 1 DF, DAILY
  4. SYNTHROID [Concomitant]
     Active Substance: LEVOTHYROXINE SODIUM
     Indication: HYPOTHYROIDISM
     Dosage: 112 ?G, DAILY

REACTIONS (2)
  - Drug ineffective [Unknown]
  - Product complaint [Unknown]
